FAERS Safety Report 4973143-1 (Version None)
Quarter: 2006Q2

REPORT INFORMATION
  Report Type: 
  Country: None (occurrence: None)
  Receive Date: 20060414
  Receipt Date: 20051017
  Transmission Date: 20061013
  Serious: Yes (Death, Hospitalization, Other)
  Sender: FDA-Public Use
  Company Number: US-MERCK-0510USA07832

PATIENT
  Age: 79 Year
  Sex: Female
  Weight: 73 kg

DRUGS (6)
  1. VIOXX [Suspect]
     Indication: ARTHRITIS
     Route: 048
     Dates: end: 20040901
  2. VIOXX [Suspect]
     Route: 048
     Dates: end: 20040901
  3. CARDENE [Concomitant]
     Indication: CHEST PAIN
     Route: 065
     Dates: start: 19900101, end: 20040101
  4. ASPIRIN [Concomitant]
     Indication: ISCHAEMIC HEART DISEASE PROPHYLAXIS
     Route: 065
     Dates: start: 19900101, end: 20040101
  5. LIPITOR [Concomitant]
     Route: 065
     Dates: start: 19900101, end: 20040101
  6. ZOLOFT [Concomitant]
     Indication: DEPRESSION
     Route: 065
     Dates: start: 19900101, end: 20040101

REACTIONS (9)
  - ARTHROPATHY [None]
  - CARDIAC DISORDER [None]
  - DEATH [None]
  - HEART INJURY [None]
  - HEPATIC FAILURE [None]
  - MYOCARDIAL INFARCTION [None]
  - PNEUMONIA [None]
  - PRESCRIBED OVERDOSE [None]
  - RENAL FAILURE [None]
